FAERS Safety Report 12531521 (Version 1)
Quarter: 2016Q3

REPORT INFORMATION
  Report Type: Spontaneous
  Country: CN (occurrence: CN)
  Receive Date: 20160706
  Receipt Date: 20160706
  Transmission Date: 20161109
  Serious: Yes (Life-Threatening)
  Sender: FDA-Public Use
  Company Number: CN-BAYER-2016-131529

PATIENT
  Age: 69 Year
  Sex: Female
  Weight: 59 kg

DRUGS (3)
  1. IOPROMIDE [Suspect]
     Active Substance: IOPROMIDE
     Indication: HEPATIC CANCER
  2. IOPROMIDE [Suspect]
     Active Substance: IOPROMIDE
     Indication: COMPUTERISED TOMOGRAM ABDOMEN
     Dosage: 65 ML, ONCE
     Route: 041
     Dates: start: 20160330, end: 20160330
  3. IOPROMIDE [Suspect]
     Active Substance: IOPROMIDE
     Indication: HIGH FREQUENCY ABLATION

REACTIONS (1)
  - Anaphylactic shock [Recovering/Resolving]

NARRATIVE: CASE EVENT DATE: 20160330
